FAERS Safety Report 8635193 (Version 2)
Quarter: 2012Q4

REPORT INFORMATION
  Report Type: 
  Country: US (occurrence: US)
  Receive Date: 20120626
  Receipt Date: 20120921
  Transmission Date: 20130627
  Serious: Yes (Death, Hospitalization)
  Sender: FDA-Public Use
  Company Number: US-ACTELION-A-NJ2012-64546

PATIENT
  Age: 77 Year
  Sex: Male

DRUGS (6)
  1. VENTAVIS [Suspect]
     Indication: PULMONARY ARTERIAL HYPERTENSION
     Dosage: 5 mcg x 6/day
     Route: 055
     Dates: start: 20120514, end: 20120601
  2. VENTAVIS [Suspect]
     Dosage: 2.5 mcg, once
     Route: 055
     Dates: start: 20101206, end: 20101206
  3. VENTAVIS [Suspect]
     Dosage: 5 mcg x 6/day
     Route: 055
     Dates: start: 20101206, end: 201203
  4. TYVASO [Concomitant]
  5. SILDENAFIL [Concomitant]
  6. ASPIRIN [Concomitant]

REACTIONS (9)
  - Respiratory failure [Fatal]
  - Pulmonary arterial hypertension [Fatal]
  - Disease progression [Fatal]
  - Cough [Unknown]
  - Asthenia [Fatal]
  - Dyspnoea [Fatal]
  - General physical health deterioration [Fatal]
  - Localised infection [Unknown]
  - Oropharyngeal pain [Unknown]
